FAERS Safety Report 13182576 (Version 3)
Quarter: 2017Q2

REPORT INFORMATION
  Report Type: Spontaneous
  Country: US (occurrence: JP)
  Receive Date: 20170203
  Receipt Date: 20170421
  Transmission Date: 20170830
  Serious: Yes (Hospitalization)
  Sender: FDA-Public Use
  Company Number: US-SUNOVION-2017SUN000383

PATIENT
  Age: 69 Year
  Sex: Male
  Weight: 68 kg

DRUGS (4)
  1. ATELEC [Concomitant]
     Active Substance: CILNIDIPINE
     Dosage: UNK
     Dates: start: 20141029
  2. INDACATEROL AND GLYCOPYRROLATE [Suspect]
     Active Substance: GLYCOPYRROLATE\INDACATEROL MALEATE
     Indication: BRONCHITIS CHRONIC
     Dosage: 1 DF (110/50 UG) , QD
     Route: 055
     Dates: start: 20141029, end: 20151007
  3. AZILVA [Concomitant]
     Active Substance: AZILSARTAN KAMEDOXOMIL
     Dosage: UNK
     Dates: start: 20141029
  4. THEO-DUR [Concomitant]
     Active Substance: THEOPHYLLINE ANHYDROUS
     Dosage: UNK
     Dates: start: 20141029

REACTIONS (5)
  - Disease progression [Unknown]
  - Prostate cancer [Not Recovered/Not Resolved]
  - Dysuria [Recovering/Resolving]
  - Bronchitis chronic [Unknown]
  - Overdose [Unknown]

NARRATIVE: CASE EVENT DATE: 201509
